FAERS Safety Report 5787221-0 (Version None)
Quarter: 2008Q2

REPORT INFORMATION
  Report Type: 
  Country: None (occurrence: None)
  Receive Date: 20080623
  Receipt Date: 20080623
  Transmission Date: 20081010
  Serious: Yes (Other)
  Sender: FDA-Public Use
  Company Number: None

PATIENT
  Sex: Male
  Weight: 137.8935 kg

DRUGS (10)
  1. ANDRODERM [Suspect]
     Indication: HYPOGONADISM
     Dosage: 5 MG Q AM TRANSDERMAL
     Route: 062
     Dates: start: 20071219, end: 20080226
  2. PROSCAR [Concomitant]
  3. BENICAR [Concomitant]
  4. DOXAZOSIN MESYLATE [Concomitant]
  5. METOPROLOL SUCCINATE [Concomitant]
  6. LISINOPRIL [Concomitant]
  7. LIPITOR [Concomitant]
  8. ASPIRIN [Concomitant]
  9. DILTIAZEM CD [Concomitant]
  10. NITROSTAT [Concomitant]

REACTIONS (2)
  - APPLICATION SITE REACTION [None]
  - RASH ERYTHEMATOUS [None]
